FAERS Safety Report 5123027-3 (Version None)
Quarter: 2006Q4

REPORT INFORMATION
  Report Type: 
  Country: None (occurrence: None)
  Receive Date: 20061009
  Receipt Date: 20060927
  Transmission Date: 20070319
  Serious: Yes (Hospitalization)
  Sender: FDA-Public Use
  Company Number: US-AMGEN-US194879

PATIENT
  Sex: Male

DRUGS (4)
  1. NEULASTA [Suspect]
     Indication: CHEMOTHERAPY
     Route: 065
     Dates: start: 20060706, end: 20060728
  2. RITUXAN [Concomitant]
     Route: 065
  3. VINCRISTINE [Concomitant]
     Route: 065
  4. CYTOXAN [Concomitant]
     Route: 065

REACTIONS (1)
  - DYSPNOEA [None]
